FAERS Safety Report 12340326 (Version 1)
Quarter: 2016Q2

REPORT INFORMATION
  Report Type: Report from Study
  Country: BR (occurrence: BR)
  Receive Date: 20160506
  Receipt Date: 20160506
  Transmission Date: 20160815
  Serious: Yes (Other)
  Sender: FDA-Public Use
  Company Number: PHHY2016BR060849

PATIENT
  Sex: Female
  Weight: 52 kg

DRUGS (2)
  1. ACLASTA [Suspect]
     Active Substance: ZOLEDRONIC ACID
     Indication: OSTEOPOROSIS
     Dosage: 5 MG, Q12MO
     Route: 042
     Dates: start: 20130405
  2. LAMITOR [Concomitant]
     Active Substance: LAMOTRIGINE
     Indication: PROPHYLAXIS
     Dosage: 1 DF, QD
     Route: 065

REACTIONS (4)
  - Fear of falling [Unknown]
  - Depression [Unknown]
  - Parkinson^s disease [Unknown]
  - Abasia [Unknown]
